FAERS Safety Report 5767777-4 (Version None)
Quarter: 2008Q2

REPORT INFORMATION
  Report Type: 
  Country: None (occurrence: None)
  Receive Date: 20080612
  Receipt Date: 20080602
  Transmission Date: 20081010
  Serious: Yes (Hospitalization)
  Sender: FDA-Public Use
  Company Number: DE-ABBOTT-08P-062-0454825-00

PATIENT
  Sex: Female
  Weight: 59 kg

DRUGS (7)
  1. HUMIRA [Suspect]
     Indication: RHEUMATOID ARTHRITIS
     Route: 058
     Dates: start: 20050201, end: 20070201
  2. METHOTREXATE [Concomitant]
     Indication: RHEUMATOID ARTHRITIS
     Dates: start: 20040501
  3. PREDNISOLONE [Concomitant]
     Indication: RHEUMATOID ARTHRITIS
     Dosage: 1-2 X/DIE
     Route: 048
     Dates: start: 19890101
  4. FOLIC ACID [Concomitant]
     Indication: DRUG USE FOR UNKNOWN INDICATION
     Route: 048
  5. CALCIUM [Concomitant]
     Indication: OSTEOPOROSIS
     Route: 048
  6. ALENDRONSAURE [Concomitant]
     Indication: OSTEOPOROSIS
     Route: 048
     Dates: start: 20060201
  7. IDEOS KAUTABLETTEN [Concomitant]
     Indication: OSTEOPOROSIS
     Route: 048

REACTIONS (4)
  - ABNORMAL BEHAVIOUR [None]
  - LACUNAR INFARCTION [None]
  - MENTAL DISORDER [None]
  - PSYCHOTIC DISORDER [None]
